FAERS Safety Report 7524438-9 (Version None)
Quarter: 2011Q2

REPORT INFORMATION
  Report Type: 
  Country: None (occurrence: None)
  Receive Date: 20110606
  Receipt Date: 20110602
  Transmission Date: 20111010
  Serious: Yes (Death, Hospitalization, Other)
  Sender: FDA-Public Use
  Company Number: PHHO2011JP01903

PATIENT
  Sex: Male

DRUGS (13)
  1. WARFARIN SODIUM [Concomitant]
  2. BLINDED NO TREATMENT RECEIVED [Suspect]
     Dosage: CODE NOT BROKEN
     Route: 048
     Dates: start: 20100805
  3. ENALAPRIL MALEATE [Suspect]
     Indication: CARDIAC FAILURE
     Dosage: 10 MG, UNK
     Route: 048
     Dates: start: 20100518
  4. ALISKIREN [Suspect]
     Indication: CARDIAC FAILURE
     Dosage: 150 MG, UNK
     Route: 048
     Dates: start: 20100628
  5. NORVASC [Concomitant]
  6. MAGNESIUM SULFATE [Concomitant]
  7. CALCIUM POLYSTYRENE SULFONATE [Concomitant]
  8. ENALAPRIL MALEATE [Suspect]
     Dosage: CODE NOT BROKEN
     Route: 048
     Dates: start: 20100805
  9. CARVEDILOL [Concomitant]
  10. GOODMIN [Concomitant]
  11. LASIX [Concomitant]
  12. LAXOBERON [Concomitant]
  13. BLINDED ALISKIREN [Suspect]
     Dosage: CODE NOT BROKEN
     Route: 048
     Dates: start: 20100805

REACTIONS (9)
  - LOSS OF CONSCIOUSNESS [None]
  - VOLUME BLOOD INCREASED [None]
  - DYSPNOEA [None]
  - CARDIO-RESPIRATORY ARREST [None]
  - CARDIAC FAILURE CONGESTIVE [None]
  - CONTUSION [None]
  - VENTRICULAR FIBRILLATION [None]
  - CARDIAC FAILURE [None]
  - CHEST DISCOMFORT [None]
